FAERS Safety Report 4502307-6 (Version None)
Quarter: 2004Q4

REPORT INFORMATION
  Report Type: 
  Country: None (occurrence: None)
  Receive Date: 20041116
  Receipt Date: 20040601
  Transmission Date: 20050328
  Serious: Yes (Life-Threatening, Hospitalization, Other)
  Sender: FDA-Public Use
  Company Number: FR-GLAXOSMITHKLINE-B0334467A

PATIENT
  Age: 53 Year
  Sex: Female
  Weight: 61 kg

DRUGS (10)
  1. ZIAGEN [Suspect]
     Indication: HIV INFECTION
     Dosage: 300MG TWICE PER DAY
     Route: 048
  2. EPIVIR [Suspect]
     Indication: HIV INFECTION
     Dosage: 300MG PER DAY
     Route: 048
  3. NORVIR [Suspect]
     Indication: HIV INFECTION
     Dosage: 100MG PER DAY
     Route: 048
  4. REYATAZ [Suspect]
     Indication: HIV INFECTION
     Dosage: 2UNIT PER DAY
     Route: 048
  5. ALDACTONE [Concomitant]
     Dosage: 300MG PER DAY
     Route: 048
  6. AVLOCARDYL [Concomitant]
     Dosage: 40MG PER DAY
     Route: 048
  7. DIFRAREL [Concomitant]
     Route: 048
  8. AKINETON [Concomitant]
     Dosage: 4MG PER DAY
     Route: 048
  9. FOLIC ACID [Concomitant]
     Dosage: 5MG THREE TIMES PER DAY
     Route: 048
  10. TOCOPHEROL CONCENTRATE CAP [Concomitant]
     Dosage: .5G PER DAY
     Route: 048

REACTIONS (7)
  - AIDS ENCEPHALOPATHY [None]
  - BLOOD PRESSURE DIASTOLIC INCREASED [None]
  - COMA [None]
  - ELECTROENCEPHALOGRAM ABNORMAL [None]
  - HEPATIC ENZYME INCREASED [None]
  - MALAISE [None]
  - NUCLEAR MAGNETIC RESONANCE IMAGING BRAIN ABNORMAL [None]
